FAERS Safety Report 4569698-1 (Version None)
Quarter: 2005Q1

REPORT INFORMATION
  Report Type: 
  Country: None (occurrence: None)
  Receive Date: 20050201
  Receipt Date: 20050117
  Transmission Date: 20050727
  Serious: Yes (Hospitalization)
  Sender: FDA-Public Use
  Company Number: 2005015060

PATIENT
  Age: 66 Year
  Sex: Female

DRUGS (12)
  1. CELEBREX [Suspect]
     Indication: ILL-DEFINED DISORDER
     Dosage: 400 MG (1 IN 1 D), ORAL
     Route: 048
     Dates: start: 20041119, end: 20041123
  2. PARECOXIB SODIUM (PARECOXIB SODIUM) [Suspect]
     Indication: ILL-DEFINED DISORDER
     Dosage: 80 MG (1 IN 1 D), INTRAVENOUS
     Route: 042
     Dates: start: 20041117, end: 20041118
  3. KETOPROFEN [Suspect]
     Indication: ILL-DEFINED DISORDER
     Dosage: 100 MG, INTRAVENOUS
     Route: 042
     Dates: start: 20041116, end: 20041117
  4. HEPARIN-FRACTION, SODIUM SALT (HEPARIN-FRACTION, SODIUM SALT) [Suspect]
     Indication: ILL-DEFINED DISORDER
     Dosage: 0.4 MG (1 IN 1 D), SUBCUTANEOUS
     Route: 058
     Dates: start: 20041116
  5. BISOPROLOL FUMARATE (BISOPROLOL) [Concomitant]
  6. ALDACTAZIDE A (HYDROCHLOROTHIAZIDE, SPIRONOLACTONE) [Concomitant]
  7. ACETAMINOPHEN [Concomitant]
  8. TRAMADOL HCL [Concomitant]
  9. ACETAMINOPHEN [Concomitant]
  10. AMOXICILLIN SODIUM (AMOXICILLIN SODIUM) [Concomitant]
  11. GENTAMICIN SULFATE [Concomitant]
  12. METOPIMAZINE (METOPIMAZINE) [Concomitant]

REACTIONS (4)
  - GASTRIC ULCER HAEMORRHAGE [None]
  - HAEMOGLOBIN DECREASED [None]
  - HIATUS HERNIA [None]
  - NAUSEA [None]
